FAERS Safety Report 22385357 (Version 10)
Quarter: 2024Q3

REPORT INFORMATION
  Report Type: Report from Study
  Country: KR (occurrence: KR)
  Receive Date: 20230530
  Receipt Date: 20240909
  Transmission Date: 20241016
  Serious: Yes (Hospitalization, Other)
  Sender: JOHNSON AND JOHNSON
  Company Number: KR-JNJFOC-20220617860

PATIENT
  Age: 4 Year
  Sex: Female

DRUGS (4)
  1. TRACLEER [Suspect]
     Active Substance: BOSENTAN
     Indication: Pulmonary arterial hypertension
     Route: 048
     Dates: start: 202204
  2. SELEXIPAG [Suspect]
     Active Substance: SELEXIPAG
     Indication: Pulmonary arterial hypertension
     Route: 048
     Dates: start: 20221227
  3. SELEXIPAG [Suspect]
     Active Substance: SELEXIPAG
     Route: 048
  4. SILDENAFIL CITRATE [Concomitant]
     Active Substance: SILDENAFIL CITRATE
     Dosage: 20 G OF PAHTENTION, 0.33 TABLET

REACTIONS (37)
  - Myocardial oedema [Recovering/Resolving]
  - Abdominal pain [Not Recovered/Not Resolved]
  - Nasopharyngitis [Not Recovered/Not Resolved]
  - Pyrexia [Recovered/Resolved]
  - Urticaria [Recovered/Resolved]
  - Pneumonia [Unknown]
  - Fatigue [Not Recovered/Not Resolved]
  - Growing pains [Unknown]
  - Hand-foot-and-mouth disease [Unknown]
  - Cyanosis [Not Recovered/Not Resolved]
  - Gait disturbance [Unknown]
  - Dyspnoea [Recovering/Resolving]
  - Nail disorder [Recovered/Resolved]
  - Pain in extremity [Not Recovered/Not Resolved]
  - Product dose omission issue [Unknown]
  - Diarrhoea [Recovering/Resolving]
  - Flushing [Unknown]
  - Erythema [Not Recovered/Not Resolved]
  - Peripheral coldness [Unknown]
  - Nail discolouration [Unknown]
  - Skin discolouration [Unknown]
  - Skin fissures [Recovering/Resolving]
  - Atopy [Unknown]
  - Headache [Recovered/Resolved]
  - Sinusitis [Unknown]
  - Abdominal pain upper [Unknown]
  - Cyanosis [Recovered/Resolved]
  - Nail disorder [Unknown]
  - Ephelides [Recovered/Resolved]
  - Enteritis [Recovering/Resolving]
  - Contusion [Unknown]
  - Irritability [Unknown]
  - Arthralgia [Unknown]
  - Hypersomnia [Unknown]
  - Blister [Unknown]
  - Hypoaesthesia [Unknown]
  - Dyspnoea exertional [Unknown]

NARRATIVE: CASE EVENT DATE: 20220101
